FAERS Safety Report 17404016 (Version 1)
Quarter: 2020Q1

REPORT INFORMATION
  Report Type: Spontaneous
  Country: FR (occurrence: FR)
  Receive Date: 20200211
  Receipt Date: 20200211
  Transmission Date: 20200409
  Serious: Yes (Hospitalization)
  Sender: FDA-Public Use
  Company Number: FR-MYLANLABS-2020M1015386

PATIENT
  Age: 34 Year
  Sex: Female
  Weight: 62 kg

DRUGS (7)
  1. CYCLOPHOSPHAMIDE. [Suspect]
     Active Substance: CYCLOPHOSPHAMIDE
     Indication: BREAST CANCER
     Dosage: UNK
     Route: 042
     Dates: start: 20191122
  2. EMEND [Concomitant]
     Active Substance: APREPITANT
     Dosage: UNK
  3. EPIRUBICIN [Suspect]
     Active Substance: EPIRUBICIN
     Indication: BREAST CANCER
     Dosage: UNK
     Route: 042
     Dates: start: 20191122
  4. NEULASTA [Concomitant]
     Active Substance: PEGFILGRASTIM
     Dosage: UNK
  5. SOLUPRED                           /00016201/ [Concomitant]
     Active Substance: PREDNISOLONE
  6. ANAUSIN METOCLOPRAMIDE [Concomitant]
     Active Substance: METOCLOPRAMIDE HYDROCHLORIDE
  7. OMEPRAZOLE. [Concomitant]
     Active Substance: OMEPRAZOLE

REACTIONS (1)
  - Rhabdomyolysis [Not Recovered/Not Resolved]

NARRATIVE: CASE EVENT DATE: 20191125
